FAERS Safety Report 20923877 (Version 2)
Quarter: 2022Q2

REPORT INFORMATION
  Report Type: Spontaneous
  Country: CN (occurrence: CN)
  Receive Date: 20220607
  Receipt Date: 20220614
  Transmission Date: 20220720
  Serious: Yes (Other)
  Sender: FDA-Public Use
  Company Number: CN-Accord-265230

PATIENT
  Age: 50 Year
  Sex: Male

DRUGS (2)
  1. GEMCITABINE [Suspect]
     Active Substance: GEMCITABINE
     Indication: Metastases to lymph nodes
     Dosage: AND 09-DEC-2011, THE PATIENT WAS SUBJECTED TO FOUR COURSES
     Dates: start: 20110727, end: 20111209
  2. CISPLATIN [Suspect]
     Active Substance: CISPLATIN
     Indication: Metastases to lymph nodes
     Dosage: AND 09-DEC-2011, THE PATIENT WAS SUBJECTED TO FOUR COURSES
     Dates: start: 20110727, end: 20111209

REACTIONS (8)
  - Leukopenia [Recovered/Resolved]
  - Anaemia [Recovered/Resolved]
  - Thrombocytopenia [Recovered/Resolved]
  - Hepatic function abnormal [Unknown]
  - Radiation oesophagitis [Unknown]
  - Poor quality sleep [Unknown]
  - Decreased appetite [Unknown]
  - Constipation [Unknown]
